FAERS Safety Report 7108677-7 (Version None)
Quarter: 2010Q4

REPORT INFORMATION
  Report Type: 
  Country: None (occurrence: None)
  Receive Date: 20101117
  Receipt Date: 20101115
  Transmission Date: 20110411
  Serious: Yes (Death, Other)
  Sender: FDA-Public Use
  Company Number: US-ROCHE-741402

PATIENT
  Sex: Female

DRUGS (2)
  1. TRASTUZUMAB [Suspect]
     Indication: BREAST CANCER METASTATIC
     Route: 042
  2. GRANULOCYTE MACROPHAGE COLONY-STIMULATING FACTOR [Suspect]
     Indication: BREAST CANCER METASTATIC
     Route: 058

REACTIONS (4)
  - DISEASE PROGRESSION [None]
  - FATIGUE [None]
  - HYPOAESTHESIA [None]
  - MYALGIA [None]
